FAERS Safety Report 12879965 (Version 1)
Quarter: 2016Q4

REPORT INFORMATION
  Report Type: Spontaneous
  Country: US (occurrence: US)
  Receive Date: 20161025
  Receipt Date: 20161025
  Transmission Date: 20170207
  Serious: No
  Sender: FDA-Public Use
  Company Number: US-PFIZER INC-2016495496

PATIENT

DRUGS (1)
  1. SONATA [Suspect]
     Active Substance: ZALEPLON
     Indication: SLEEP DISORDER
     Dosage: UNK

REACTIONS (3)
  - Drug ineffective [Unknown]
  - Insomnia [Unknown]
  - Nightmare [Unknown]
